FAERS Safety Report 6756180-6 (Version None)
Quarter: 2010Q2

REPORT INFORMATION
  Report Type: 
  Country: None (occurrence: None)
  Receive Date: 20100604
  Receipt Date: 20100524
  Transmission Date: 20101027
  Serious: Yes (Other)
  Sender: FDA-Public Use
  Company Number: PHHY2010JP33982

PATIENT

DRUGS (3)
  1. RASILEZ [Suspect]
     Indication: HYPERTENSION
     Dosage: UNK
     Route: 048
  2. MICARDIS [Concomitant]
     Route: 048
  3. CALONAL [Concomitant]

REACTIONS (2)
  - DRUG ERUPTION [None]
  - RASH [None]
